FAERS Safety Report 9932005 (Version 2)
Quarter: 2014Q1

REPORT INFORMATION
  Report Type: Spontaneous
  Country: US (occurrence: US)
  Receive Date: 20140228
  Receipt Date: 20140228
  Transmission Date: 20141002
  Serious: No
  Sender: FDA-Public Use
  Company Number: US-ABBVIE-13P-163-1069654-00

PATIENT
  Age: 33 Year
  Sex: Male
  Weight: 129.39 kg

DRUGS (3)
  1. ANDROGEL [Suspect]
     Indication: PRODUCT USED FOR UNKNOWN INDICATION
     Dosage: APPLIED TO CHEST AND ABDOMEN
     Dates: start: 201301
  2. HYDROCHLOROTHIAZIDE [Concomitant]
     Indication: PRODUCT USED FOR UNKNOWN INDICATION
  3. CARVEDILOL [Concomitant]
     Indication: HYPERTENSION

REACTIONS (3)
  - Drug administered at inappropriate site [Unknown]
  - Hypertension [Recovered/Resolved]
  - Blood pressure increased [Unknown]
